FAERS Safety Report 10120191 (Version 3)
Quarter: 2014Q2

REPORT INFORMATION
  Report Type: Spontaneous
  Country: JP (occurrence: JP)
  Receive Date: 20140426
  Receipt Date: 20140623
  Transmission Date: 20141212
  Serious: Yes (Hospitalization)
  Sender: FDA-Public Use
  Company Number: PHHY2014JP050702

PATIENT
  Age: 46 Year
  Sex: Female
  Weight: 57 kg

DRUGS (12)
  1. CLOZARIL [Suspect]
     Indication: SCHIZOPHRENIA
     Dosage: 12.5 MG, DAILY
     Route: 048
     Dates: start: 20140331, end: 20140331
  2. CLOZARIL [Suspect]
     Dosage: 25 MG, DAILY
     Route: 048
     Dates: start: 20140401, end: 20140408
  3. CLOZARIL [Suspect]
     Dosage: 50 MG, DAILY
     Route: 048
     Dates: start: 20140409, end: 20140415
  4. CLOZARIL [Suspect]
     Dosage: 75 MG, DAILY
     Route: 048
     Dates: start: 20140416, end: 20140422
  5. CLOZARIL [Suspect]
     Dosage: 50 MG,DAILY
     Route: 048
     Dates: start: 20140611
  6. CLOZARIL [Suspect]
     Dosage: 50 MG, DAILY
     Route: 048
     Dates: start: 20140612
  7. ZYPREXA [Suspect]
     Indication: SCHIZOPHRENIA
     Dosage: 10 MG, DAILY
     Route: 030
     Dates: start: 20140327, end: 20140406
  8. ZYPREXA [Suspect]
     Dosage: 10 MG, DAILY
     Route: 048
     Dates: start: 20140407, end: 20140415
  9. ZYPREXA [Suspect]
     Dosage: 7.5 MG, DAILY
     Route: 048
     Dates: start: 20140416, end: 20140421
  10. MAGNESIUM OXIDE [Concomitant]
     Indication: CONSTIPATION
     Dosage: 3 G
     Route: 048
     Dates: start: 20131011, end: 20140422
  11. PANTETHINE [Concomitant]
     Indication: CONSTIPATION
     Dosage: 600 MG
     Route: 048
     Dates: start: 20131011, end: 20140422
  12. LAC-B [Concomitant]
     Indication: CONSTIPATION
     Dosage: 2 G, UNK
     Route: 048
     Dates: start: 20131011, end: 20140422

REACTIONS (15)
  - Pyelonephritis [Recovered/Resolved]
  - Inflammation [Recovered/Resolved]
  - Pyrexia [Recovered/Resolved]
  - Ileus [Recovering/Resolving]
  - Red blood cell count decreased [Unknown]
  - Haematocrit decreased [Unknown]
  - White blood cell count increased [Unknown]
  - Neutrophil percentage increased [Unknown]
  - Monocyte percentage increased [Unknown]
  - Lymphocyte percentage increased [Unknown]
  - Aspartate aminotransferase increased [Unknown]
  - Alanine aminotransferase increased [Unknown]
  - Haemoglobin decreased [Unknown]
  - Eosinophil percentage increased [Unknown]
  - Blood bilirubin increased [Unknown]
